FAERS Safety Report 6575098-5 (Version None)
Quarter: 2010Q1

REPORT INFORMATION
  Report Type: 
  Country: None (occurrence: None)
  Receive Date: 20100209
  Receipt Date: 20100203
  Transmission Date: 20100710
  Serious: Yes (Hospitalization)
  Sender: FDA-Public Use
  Company Number: US-SANOFI-AVENTIS-2009SA011898

PATIENT
  Age: 69 Year
  Sex: Female
  Weight: 82.7 kg

DRUGS (12)
  1. MULTAQ [Suspect]
     Indication: ATRIAL FIBRILLATION
     Route: 048
     Dates: start: 20091221, end: 20091229
  2. PLAVIX [Concomitant]
     Route: 048
     Dates: end: 20091201
  3. ASPIRIN [Concomitant]
  4. PLETAL [Concomitant]
  5. ALDACTONE [Concomitant]
  6. FUROSEMIDE [Concomitant]
  7. SEREVENT [Concomitant]
     Dosage: DOSE:1 PUFF(S)
  8. EFFEXOR [Concomitant]
  9. ZOCOR [Concomitant]
  10. TOPROL-XL [Concomitant]
  11. DIGOXIN [Concomitant]
     Dates: end: 20091201
  12. FOLTX [Concomitant]
     Dosage: 2.5/25/2

REACTIONS (6)
  - CARDIAC FAILURE [None]
  - INTERNATIONAL NORMALISED RATIO INCREASED [None]
  - PULMONARY OEDEMA [None]
  - RESPIRATORY ARREST [None]
  - URINARY TRACT INFECTION [None]
  - WHITE BLOOD CELL COUNT INCREASED [None]
